FAERS Safety Report 6260568-X (Version None)
Quarter: 2009Q2

REPORT INFORMATION
  Report Type: 
  Country: None (occurrence: None)
  Receive Date: 20090615
  Receipt Date: 20090601
  Transmission Date: 20091009
  Serious: Yes (Death, Hospitalization)
  Sender: FDA-Public Use
  Company Number: THYM-1001062

PATIENT
  Age: 80 Year
  Sex: Female
  Weight: 40 kg

DRUGS (7)
  1. THYMOGLOBULIN [Suspect]
     Indication: APLASTIC ANAEMIA
     Dosage: 3.75 MG/KG, QD, INTRAVENOUS
     Route: 042
     Dates: start: 20090408, end: 20090412
  2. METHYLPREDNISOLONE SODIUM SUCCINATE [Concomitant]
  3. CYCLOSPORINE [Concomitant]
  4. G-CSF (GRANULOCYTE COLONY STIMULATING FACTOR) [Concomitant]
  5. SULFACETHOXAZOLE W (SULFAMETOXAZOLE, TRIMETHOPRIM) [Concomitant]
  6. FLUCONAZOLE [Concomitant]
  7. UBIDECARENONE (UBIDECARENONE) [Concomitant]

REACTIONS (6)
  - CARDIAC FAILURE ACUTE [None]
  - CARDIAC FAILURE CONGESTIVE [None]
  - CARDIOMEGALY [None]
  - MOVEMENT DISORDER [None]
  - NO THERAPEUTIC RESPONSE [None]
  - RESPIRATORY DISORDER [None]
